FAERS Safety Report 21507004 (Version 1)
Quarter: 2022Q4

REPORT INFORMATION
  Report Type: Report from Study
  Country: US (occurrence: US)
  Receive Date: 20221026
  Receipt Date: 20221026
  Transmission Date: 20230113
  Serious: No
  Sender: FDA-Public Use
  Company Number: US-ABBVIE-4130733

PATIENT
  Sex: Male

DRUGS (7)
  1. VENCLEXTA [Suspect]
     Active Substance: VENETOCLAX
     Indication: Neoplasm malignant
     Dosage: DAILY WEEK 4?STRENGTH- 100 MILLIGRAMS
     Route: 048
  2. VENCLEXTA [Suspect]
     Active Substance: VENETOCLAX
     Indication: Neoplasm malignant
     Dosage: BY MOUTH EVERY DAY ON WEEK 1?STRENGTH- 10 MILLIGRAMS
     Route: 048
  3. VENCLEXTA [Suspect]
     Active Substance: VENETOCLAX
     Indication: Neoplasm malignant
     Dosage: BY MOUTH DAILY WEEK 3?STRENGTH- 100 MILLIGRAMS
     Route: 048
  4. VENCLEXTA [Suspect]
     Active Substance: VENETOCLAX
     Indication: Neoplasm malignant
     Dosage: DAILY BY MOUTH WEEK 2?STRENGTH- 50 MILLIGRAMS
     Route: 048
  5. GAZYVA [Suspect]
     Active Substance: OBINUTUZUMAB
     Indication: Neoplasm malignant
     Dosage: DAY 1
     Route: 042
  6. GAZYVA [Suspect]
     Active Substance: OBINUTUZUMAB
     Indication: Neoplasm malignant
     Dosage: DAYS 8 AND 15 OF CYCLE 1
     Route: 042
  7. GAZYVA [Suspect]
     Active Substance: OBINUTUZUMAB
     Indication: Neoplasm malignant
     Dosage: FORM OF ADMIN : VIAL, DOSE : 900 MG
     Route: 042

REACTIONS (1)
  - Product prescribing error [Unknown]
